FAERS Safety Report 23084697 (Version 7)
Quarter: 2023Q4

REPORT INFORMATION
  Report Type: Report from Study
  Country: BE (occurrence: BE)
  Receive Date: 20231019
  Receipt Date: 20231124
  Transmission Date: 20240110
  Serious: Yes (Hospitalization)
  Sender: FDA-Public Use
  Company Number: BE-002147023-NVSC2023BE221978

PATIENT
  Age: 65 Year
  Sex: Female
  Weight: 36.1 kg

DRUGS (11)
  1. COSENTYX [Suspect]
     Active Substance: SECUKINUMAB
     Indication: Giant cell arteritis
     Dosage: 150 MG
     Route: 058
     Dates: start: 20230508, end: 20230925
  2. PREDNISONE [Suspect]
     Active Substance: PREDNISONE
     Indication: Giant cell arteritis
     Dosage: DOSE BLINDED
     Route: 048
     Dates: start: 20230612, end: 20231013
  3. PREDNISONE [Suspect]
     Active Substance: PREDNISONE
     Indication: Giant cell arteritis
     Dosage: 40 MG, QD
     Route: 048
     Dates: start: 20230508
  4. LIDOCAINE [Concomitant]
     Active Substance: LIDOCAINE
     Indication: Aphthous ulcer
     Dosage: UNK
     Route: 065
     Dates: start: 20231009, end: 20231014
  5. CALCIUM CARBONATE\CHOLECALCIFEROL [Concomitant]
     Active Substance: CALCIUM CARBONATE\CHOLECALCIFEROL
     Indication: Osteoporosis prophylaxis
     Dosage: CALCIUM CARBONATE 1000MG ; COLECALCIFEROL 800U
     Route: 065
     Dates: start: 20230420
  6. CETIRIZINE [Concomitant]
     Active Substance: CETIRIZINE HYDROCHLORIDE
     Indication: Insomnia
     Dosage: UNK
     Route: 065
     Dates: start: 202305
  7. PERIO AID [Concomitant]
     Indication: Aphthous ulcer
     Dosage: UNK
     Route: 065
     Dates: start: 20230927, end: 20231009
  8. COLCHICINE [Concomitant]
     Active Substance: COLCHICINE
     Indication: Aphthous ulcer
     Dosage: 1 MG, QD
     Route: 065
     Dates: start: 20231004, end: 20231009
  9. COLCHICINE [Concomitant]
     Active Substance: COLCHICINE
     Dosage: 1 MG TWICE DAILY
     Route: 065
     Dates: start: 20231009, end: 20231012
  10. CLOBETASOL PROPIONATE [Concomitant]
     Active Substance: CLOBETASOL PROPIONATE
     Indication: Aphthous ulcer
     Dosage: UNK
     Route: 065
     Dates: start: 20231009, end: 20231029
  11. DIFLUCAN [Concomitant]
     Active Substance: FLUCONAZOLE
     Indication: Candida infection
     Dosage: UNK
     Route: 065
     Dates: start: 20231012, end: 20231013

REACTIONS (1)
  - Aphthous ulcer [Not Recovered/Not Resolved]

NARRATIVE: CASE EVENT DATE: 20231012
